FAERS Safety Report 7407380-3 (Version None)
Quarter: 2011Q2

REPORT INFORMATION
  Report Type: 
  Country: None (occurrence: None)
  Receive Date: 20110411
  Receipt Date: 20110404
  Transmission Date: 20111010
  Serious: Yes (Hospitalization, Disabling, Other)
  Sender: FDA-Public Use
  Company Number: PR-MERCK-0805USA02780

PATIENT
  Age: 63 Year
  Sex: Female

DRUGS (4)
  1. FOSAMAX [Suspect]
     Indication: OSTEOPENIA
     Route: 048
     Dates: start: 20001101, end: 20040101
  2. FOSAMAX [Suspect]
     Route: 048
     Dates: start: 20040401, end: 20070401
  3. FOSAMAX [Suspect]
     Indication: OSTEOPOROSIS
     Route: 048
     Dates: start: 20001101, end: 20040101
  4. FOSAMAX [Suspect]
     Route: 048
     Dates: start: 20040401, end: 20070401

REACTIONS (25)
  - LOOSE TOOTH [None]
  - ORAL INFECTION [None]
  - JAW DISORDER [None]
  - ANXIETY [None]
  - DEPRESSION [None]
  - HAEMORRHAGE [None]
  - SWELLING [None]
  - INTERVERTEBRAL DISC DEGENERATION [None]
  - IMPAIRED HEALING [None]
  - OSTEONECROSIS OF JAW [None]
  - UTERINE DISORDER [None]
  - RENAL CYST [None]
  - GINGIVAL BLEEDING [None]
  - BLADDER DISORDER [None]
  - GINGIVITIS [None]
  - CHOLELITHIASIS [None]
  - GASTROOESOPHAGEAL REFLUX DISEASE [None]
  - HIATUS HERNIA [None]
  - TOOTH FRACTURE [None]
  - BREAST MASS [None]
  - ORAL DISORDER [None]
  - REFLUX GASTRITIS [None]
  - HYDRONEPHROSIS [None]
  - ADVERSE EVENT [None]
  - SPONDYLITIS [None]
